FAERS Safety Report 7277790-6 (Version None)
Quarter: 2011Q1

REPORT INFORMATION
  Report Type: 
  Country: None (occurrence: None)
  Receive Date: 20110207
  Receipt Date: 20110201
  Transmission Date: 20110831
  Serious: Yes (Death)
  Sender: FDA-Public Use
  Company Number: FR-CEPHALON-2011000549

PATIENT
  Sex: Female

DRUGS (3)
  1. DURAGESIC-100 [Concomitant]
  2. MORPHINE [Concomitant]
  3. ACTIQ [Suspect]
     Indication: BREAKTHROUGH PAIN
     Route: 002

REACTIONS (2)
  - DEATH [None]
  - DRUG PRESCRIBING ERROR [None]
